FAERS Safety Report 15555919 (Version 1)
Quarter: 2018Q4

REPORT INFORMATION
  Report Type: Spontaneous
  Country: BR (occurrence: BR)
  Receive Date: 20181026
  Receipt Date: 20181026
  Transmission Date: 20190205
  Serious: Yes (Hospitalization, Other)
  Sender: FDA-Public Use
  Company Number: BR-PFIZER INC-2017096138

PATIENT
  Age: 61 Year
  Sex: Female
  Weight: 55 kg

DRUGS (3)
  1. ALDAZIDA [Suspect]
     Active Substance: HYDROCHLOROTHIAZIDE\SPIRONOLACTONE
     Indication: DIURETIC THERAPY
     Dosage: 4 TABLETS/DAY
     Route: 048
  2. FUROSEMIDE. [Concomitant]
     Active Substance: FUROSEMIDE
     Indication: SWELLING
     Dosage: 1 TABLET AT NIGHT
     Route: 048
     Dates: start: 1997
  3. ALDAZIDA [Suspect]
     Active Substance: HYDROCHLOROTHIAZIDE\SPIRONOLACTONE
     Indication: SWELLING
     Dosage: 2 TABLETS DAILY (50 MG/50 MG)
     Route: 048
     Dates: start: 1993

REACTIONS (10)
  - Blood sodium decreased [Recovered/Resolved]
  - Intentional product misuse [Unknown]
  - Syncope [Recovered/Resolved]
  - Blood growth hormone decreased [Not Recovered/Not Resolved]
  - Therapeutic response unexpected [Unknown]
  - Blood potassium decreased [Recovered/Resolved]
  - Neoplasm [Not Recovered/Not Resolved]
  - Gastrointestinal neoplasm [Not Recovered/Not Resolved]
  - Bone neoplasm [Not Recovered/Not Resolved]
  - Muscle atrophy [Not Recovered/Not Resolved]
